FAERS Safety Report 8453399-3 (Version None)
Quarter: 2012Q2

REPORT INFORMATION
  Report Type: 
  Country: None (occurrence: None)
  Receive Date: 20120620
  Receipt Date: 20120516
  Transmission Date: 20120825
  Serious: No
  Sender: FDA-Public Use
  Company Number: US-VERTEX PHARMACEUTICALS INC.-AE-2012-007188

PATIENT
  Sex: Female
  Weight: 98.972 kg

DRUGS (6)
  1. COPEGUS [Concomitant]
     Indication: HEPATITIS C
     Dates: start: 20120327
  2. LOSARTAN POTASSIUM AND HYDROCHLOROTHIAZIDE [Concomitant]
     Indication: HYPERTENSION
     Route: 048
  3. MULTI-VITAMIN [Concomitant]
     Route: 048
  4. OMEPRAZOLE [Concomitant]
     Indication: GASTROOESOPHAGEAL REFLUX DISEASE
     Route: 048
  5. INCIVEK [Suspect]
     Indication: HEPATITIS C
     Route: 048
     Dates: start: 20120327
  6. PEGASYS [Concomitant]
     Indication: HEPATITIS C
     Route: 058
     Dates: start: 20120327

REACTIONS (3)
  - NAUSEA [None]
  - NASOPHARYNGITIS [None]
  - PRURITUS GENERALISED [None]
